FAERS Safety Report 10413802 (Version 1)
Quarter: 2014Q3

REPORT INFORMATION
  Report Type: Spontaneous
  Country: CA (occurrence: None)
  Receive Date: 20140825
  Receipt Date: 20140825
  Transmission Date: 20150326
  Serious: Yes (Hospitalization)
  Sender: FDA-Public Use
  Company Number: CA-016622

PATIENT
  Age: 84 Year
  Sex: Male

DRUGS (1)
  1. FIRMAGON [Suspect]
     Active Substance: DEGARELIX ACETATE
     Indication: PROSTATE CANCER

REACTIONS (5)
  - Asthenia [None]
  - Nausea [None]
  - Back pain [None]
  - Lymphoma [None]
  - Thrombosis [None]

NARRATIVE: CASE EVENT DATE: 20140707
